FAERS Safety Report 6155147-9 (Version None)
Quarter: 2009Q2

REPORT INFORMATION
  Report Type: 
  Country: None (occurrence: None)
  Receive Date: 20090415
  Receipt Date: 20090407
  Transmission Date: 20091009
  Serious: Yes (Other)
  Sender: FDA-Public Use
  Company Number: KR-JNJFOC-20090402655

PATIENT
  Age: 90 Year
  Sex: Male

DRUGS (2)
  1. TYLENOL-500 [Suspect]
     Route: 048
  2. TYLENOL-500 [Suspect]
     Indication: ARTHRITIS
     Route: 048

REACTIONS (1)
  - HAEMOGLOBIN DECREASED [None]
